FAERS Safety Report 6738035-6 (Version None)
Quarter: 2010Q2

REPORT INFORMATION
  Report Type: 
  Country: None (occurrence: None)
  Receive Date: 20100519
  Receipt Date: 20100512
  Transmission Date: 20101027
  Serious: Yes (Other)
  Sender: FDA-Public Use
  Company Number: 2010SP027026

PATIENT
  Age: 40 Year
  Sex: Female

DRUGS (4)
  1. SAPHRIS [Suspect]
     Indication: DRUG USE FOR UNKNOWN INDICATION
     Dosage: 5 MG;BID ; 10 MG;BID
  2. LITHIUM CARBONATE [Concomitant]
  3. BUSPAR [Concomitant]
  4. HALDOL [Concomitant]

REACTIONS (4)
  - AFFECTIVE DISORDER [None]
  - AGITATION [None]
  - DYSGEUSIA [None]
  - SELF INJURIOUS BEHAVIOUR [None]
